FAERS Safety Report 8863003 (Version 1)
Quarter: 2012Q4

REPORT INFORMATION
  Report Type: 
  Country: US (occurrence: US)
  Receive Date: 20121026
  Receipt Date: 20121026
  Transmission Date: 20130627
  Serious: No
  Sender: FDA-Public Use
  Company Number: US-ALLERGAN-1201354US

PATIENT
  Sex: Female

DRUGS (1)
  1. ALPHAGAN P [Suspect]
     Indication: GLAUCOMA
     Dosage: 1 drop to both eyes, 3 times per day
     Route: 047
     Dates: start: 201201

REACTIONS (1)
  - Dry mouth [Not Recovered/Not Resolved]
